FAERS Safety Report 5700004-2 (Version None)
Quarter: 2008Q2

REPORT INFORMATION
  Report Type: 
  Country: None (occurrence: None)
  Receive Date: 20080410
  Receipt Date: 20080407
  Transmission Date: 20081010
  Serious: Yes (Hospitalization, Other)
  Sender: FDA-Public Use
  Company Number: US-ASTRAZENECA-2008UW05085

PATIENT
  Age: 776 Month
  Sex: Female
  Weight: 72.6 kg

DRUGS (26)
  1. SYMBICORT [Suspect]
     Indication: ASTHMA
     Dosage: 80/4.5, 2 PUFFS BID
     Route: 055
     Dates: start: 20071101, end: 20071228
  2. SPIRIVA [Concomitant]
  3. ALBUTEROL [Concomitant]
  4. PROVENTIL [Concomitant]
  5. SINGULAIR [Concomitant]
  6. FLONASE [Concomitant]
  7. LASIX [Concomitant]
  8. POTASSIUM CHLORIDE [Concomitant]
  9. STOOL SOFTENER [Concomitant]
  10. ZYRTEC [Concomitant]
  11. VITAMINS [Concomitant]
  12. CALCIUM [Concomitant]
  13. MIRAPEX [Concomitant]
  14. AMBIEN CR [Concomitant]
  15. THEOPHYLLIN ER [Concomitant]
  16. POTASSIUM CHLORIDE [Concomitant]
  17. LIPITOR [Concomitant]
  18. DILANTIN [Concomitant]
  19. NASACORT [Concomitant]
  20. ALLEGRA D 24 HOUR [Concomitant]
     Dosage: 1 TABLET QD
  21. LORTAB [Concomitant]
     Dosage: 10/500 MG QID PRN
  22. ASPIRIN [Concomitant]
  23. SEROQUEL [Concomitant]
  24. LORAZEPAM [Concomitant]
  25. PAXIL [Concomitant]
  26. DICLOFENAC SODIUM [Concomitant]

REACTIONS (5)
  - ABDOMINAL PAIN [None]
  - CONVULSION [None]
  - DIARRHOEA [None]
  - ILEUS [None]
  - VOMITING [None]
